FAERS Safety Report 10218548 (Version 2)
Quarter: 2014Q2

REPORT INFORMATION
  Report Type: Report from Study
  Country: JP (occurrence: JP)
  Receive Date: 20140605
  Receipt Date: 20140605
  Transmission Date: 20141212
  Serious: Yes (Hospitalization)
  Sender: FDA-Public Use
  Company Number: JP-JNJFOC-20131215122

PATIENT
  Age: 45 Year
  Sex: Male
  Weight: 48 kg

DRUGS (35)
  1. REMICADE [Suspect]
     Indication: COLITIS ULCERATIVE
     Route: 042
     Dates: start: 20120509
  2. REMICADE [Suspect]
     Indication: COLITIS ULCERATIVE
     Route: 042
     Dates: start: 20111222
  3. REMICADE [Suspect]
     Indication: COLITIS ULCERATIVE
     Route: 042
     Dates: start: 20120119
  4. REMICADE [Suspect]
     Indication: COLITIS ULCERATIVE
     Route: 042
     Dates: start: 20120316
  5. REMICADE [Suspect]
     Indication: COLITIS ULCERATIVE
     Route: 042
     Dates: start: 20111209
  6. REMICADE [Suspect]
     Indication: COLITIS ULCERATIVE
     Route: 042
     Dates: start: 20120702
  7. REMICADE [Suspect]
     Indication: COLITIS ULCERATIVE
     Route: 042
     Dates: start: 20120824
  8. REMICADE [Suspect]
     Indication: COLITIS ULCERATIVE
     Route: 042
     Dates: start: 20121019
  9. REMICADE [Suspect]
     Indication: COLITIS ULCERATIVE
     Route: 042
     Dates: start: 20121214
  10. SOLU-CORTEF [Concomitant]
     Indication: PROPHYLAXIS
     Route: 065
     Dates: start: 20111209, end: 20111209
  11. SOLU-CORTEF [Concomitant]
     Indication: PROPHYLAXIS
     Route: 065
     Dates: start: 20111222, end: 20121222
  12. SOLU-CORTEF [Concomitant]
     Indication: PROPHYLAXIS
     Route: 065
     Dates: start: 20120316, end: 20120616
  13. SOLU-CORTEF [Concomitant]
     Indication: PROPHYLAXIS
     Route: 065
     Dates: start: 20120509, end: 20120509
  14. SOLU-CORTEF [Concomitant]
     Indication: PROPHYLAXIS
     Route: 065
     Dates: start: 20120702, end: 20120702
  15. SOLU-CORTEF [Concomitant]
     Indication: PROPHYLAXIS
     Route: 065
     Dates: start: 20120119, end: 20120119
  16. ELENTAL [Concomitant]
     Indication: COLITIS ULCERATIVE
     Dosage: 1 PAC
     Route: 048
     Dates: start: 20111217, end: 20120105
  17. TANNALBIN [Concomitant]
     Indication: COLITIS ULCERATIVE
     Route: 048
     Dates: start: 20111229, end: 20120219
  18. RACOL [Concomitant]
     Indication: COLITIS ULCERATIVE
     Route: 048
     Dates: start: 20120106, end: 20120219
  19. IRRIBOW [Concomitant]
     Indication: COLITIS ULCERATIVE
     Route: 048
     Dates: start: 20120109, end: 20120222
  20. PARIET [Concomitant]
     Indication: GASTROOESOPHAGEAL REFLUX DISEASE
     Route: 048
     Dates: start: 20120119
  21. PARIET [Concomitant]
     Indication: GASTROOESOPHAGEAL REFLUX DISEASE
     Route: 048
  22. PENTASA [Concomitant]
     Indication: COLITIS ULCERATIVE
     Route: 048
     Dates: start: 20120209
  23. VALIXA [Concomitant]
     Indication: CYTOMEGALOVIRUS ENTEROCOLITIS
     Route: 048
     Dates: start: 20120420, end: 20120620
  24. CHLOR-TRIMETON [Concomitant]
     Indication: PROPHYLAXIS
     Route: 065
     Dates: start: 20120702, end: 20120702
  25. CHLOR-TRIMETON [Concomitant]
     Indication: PROPHYLAXIS
     Route: 065
     Dates: start: 20120509, end: 20120509
  26. CEFAMEZIN [Concomitant]
     Indication: CENTRAL VENOUS CATHETERISATION
     Route: 065
     Dates: start: 20120601, end: 20120601
  27. CEFAMEZIN [Concomitant]
     Indication: CENTRAL VENOUS CATHETERISATION
     Route: 065
     Dates: start: 20120601
  28. DEPAS [Concomitant]
     Indication: ANXIETY DISORDER
     Dosage: 0.5MG/DAY AN AS NEEDED BASIS
     Route: 048
     Dates: start: 20120613, end: 20121018
  29. RIKKUNSHI-TO [Concomitant]
     Indication: DYSPEPSIA
     Dosage: 3 PAC, 1 PAC
     Route: 048
     Dates: start: 20120626, end: 20120823
  30. GANATON [Concomitant]
     Indication: DYSPEPSIA
     Dosage: 3TAB,1TAB
     Route: 048
     Dates: start: 20120628, end: 20121203
  31. PREDONINE [Concomitant]
     Indication: COLITIS ULCERATIVE
     Route: 048
     Dates: start: 201111, end: 20120110
  32. PREDONINE [Concomitant]
     Indication: COLITIS ULCERATIVE
     Route: 048
     Dates: start: 20120111, end: 20120207
  33. IMURAN [Concomitant]
     Indication: COLITIS ULCERATIVE
     Route: 048
     Dates: start: 20120510
  34. IMURAN [Concomitant]
     Indication: COLITIS ULCERATIVE
     Route: 048
     Dates: start: 201111, end: 20120509
  35. MIYA BM [Concomitant]
     Indication: COLITIS ULCERATIVE
     Dosage: 3 TAB
     Route: 048

REACTIONS (5)
  - Pneumonia fungal [Recovering/Resolving]
  - Pneumonia bacterial [Recovering/Resolving]
  - Oesophageal candidiasis [Recovering/Resolving]
  - Rash [Recovered/Resolved]
  - Pleural effusion [Recovering/Resolving]
